FAERS Safety Report 8127907-6 (Version None)
Quarter: 2012Q1

REPORT INFORMATION
  Report Type: 
  Country: None (occurrence: None)
  Receive Date: 20120210
  Receipt Date: 20120204
  Transmission Date: 20120608
  Serious: Yes (Hospitalization)
  Sender: FDA-Public Use
  Company Number: US-BAYER-201021022NA

PATIENT
  Age: 34 Year
  Sex: Female
  Weight: 60 kg

DRUGS (8)
  1. YAZ [Suspect]
     Indication: ACNE
  2. PROPOXYPHENE NAPSYLATE W/ ACETAMINOPHEN [Concomitant]
  3. YAZ [Suspect]
     Indication: PREMENSTRUAL SYNDROME
  4. PROTONIX [Concomitant]
     Indication: EPIGASTRIC DISCOMFORT
  5. PANTOPRAZOLE [Concomitant]
  6. AZITHROMYCIN [Concomitant]
  7. IBUPROFEN (ADVIL) [Concomitant]
  8. YAZ [Suspect]
     Indication: CONTRACEPTION
     Dosage: UNK
     Route: 048
     Dates: start: 20080701, end: 20090901

REACTIONS (7)
  - CHOLECYSTITIS CHRONIC [None]
  - ANHEDONIA [None]
  - EMOTIONAL DISTRESS [None]
  - ABDOMINAL PAIN [None]
  - INJURY [None]
  - ANXIETY [None]
  - PAIN [None]
